FAERS Safety Report 14386541 (Version 1)
Quarter: 2018Q1

REPORT INFORMATION
  Report Type: Spontaneous
  Country: US (occurrence: US)
  Receive Date: 20180115
  Receipt Date: 20180115
  Transmission Date: 20180509
  Serious: Yes (Other)
  Sender: FDA-Public Use
  Company Number: US-SA-2017SA150535

PATIENT
  Age: 53 Year
  Sex: Female
  Weight: 94.37 kg

DRUGS (4)
  1. TAXOTERE [Suspect]
     Active Substance: DOCETAXEL
     Indication: BREAST CANCER FEMALE
     Dosage: DOSAGE: 130MG-150MG
     Route: 051
     Dates: start: 20091112, end: 20091112
  2. CARBOPLATIN. [Concomitant]
     Active Substance: CARBOPLATIN
  3. TRASTUZUMAB. [Concomitant]
     Active Substance: TRASTUZUMAB
  4. TAXOTERE [Suspect]
     Active Substance: DOCETAXEL
     Indication: BREAST CANCER FEMALE
     Dosage: DOSAGE: 130MG-150MG
     Route: 051
     Dates: start: 20100128, end: 20100128

REACTIONS (2)
  - Alopecia [Not Recovered/Not Resolved]
  - Psychological trauma [Unknown]

NARRATIVE: CASE EVENT DATE: 20100728
